FAERS Safety Report 4585274-9 (Version None)
Quarter: 2005Q1

REPORT INFORMATION
  Report Type: 
  Country: None (occurrence: None)
  Receive Date: 20050214
  Receipt Date: 20050131
  Transmission Date: 20050727
  Serious: Yes (Hospitalization)
  Sender: FDA-Public Use
  Company Number: 2005BI002342

PATIENT
  Age: 54 Year
  Sex: Female
  Weight: 87.0906 kg

DRUGS (3)
  1. AVONEX [Suspect]
     Indication: MULTIPLE SCLEROSIS
     Dosage: 20 UG;QW;IM
     Route: 030
     Dates: start: 19990101, end: 20040101
  2. AVONEX [Suspect]
     Indication: MULTIPLE SCLEROSIS
     Dosage: 20 UG;QW;IM
     Route: 030
     Dates: start: 20040101, end: 20040101
  3. AVONEX [Suspect]
     Indication: MULTIPLE SCLEROSIS
     Dosage: 30 UG;QW;IM
     Route: 030
     Dates: start: 20040101

REACTIONS (10)
  - ARTHRITIS [None]
  - BLOOD CHOLESTEROL INCREASED [None]
  - FATIGUE [None]
  - HYPOTHYROIDISM [None]
  - INTERVERTEBRAL DISC PROTRUSION [None]
  - MENOPAUSE [None]
  - PRURITUS [None]
  - PYREXIA [None]
  - ROAD TRAFFIC ACCIDENT [None]
  - SCOLIOSIS [None]
